FAERS Safety Report 8288378-2 (Version None)
Quarter: 2012Q2

REPORT INFORMATION
  Report Type: 
  Country: None (occurrence: None)
  Receive Date: 20120416
  Receipt Date: 20120413
  Transmission Date: 20120825
  Serious: Yes (Hospitalization)
  Sender: FDA-Public Use
  Company Number: IT-PFIZER INC-2012075290

PATIENT
  Age: 61 Year
  Sex: Female

DRUGS (6)
  1. ZOLPIDEM TARTRATE [Suspect]
     Dosage: 15 DOSAGE UNITS
     Route: 048
     Dates: start: 20120307, end: 20120307
  2. CLONAZEPAM [Concomitant]
     Dosage: 5 DROPS, UNK
     Dates: end: 20120305
  3. LORAZEPAM [Suspect]
     Dosage: 2.5MG X 20 DOSAGE UNITS
     Route: 048
     Dates: start: 20120307, end: 20120307
  4. ZOLOFT [Suspect]
     Dosage: 100MG X 15 DOSAGE UNITS
     Route: 048
     Dates: start: 20120307, end: 20120307
  5. PAROXETINE [Suspect]
     Dosage: 550 MG TOTAL DOSE
     Route: 048
     Dates: start: 20120307, end: 20120307
  6. ACETYLSALICYLIC ACID [Concomitant]
     Dosage: UNK
     Dates: end: 20120305

REACTIONS (4)
  - SUICIDE ATTEMPT [None]
  - BRADYPHRENIA [None]
  - INTENTIONAL OVERDOSE [None]
  - BRADYKINESIA [None]
